FAERS Safety Report 6029083-2 (Version None)
Quarter: 2009Q1

REPORT INFORMATION
  Report Type: 
  Country: None (occurrence: None)
  Receive Date: 20090106
  Receipt Date: 20081225
  Transmission Date: 20090719
  Serious: Yes (Other)
  Sender: FDA-Public Use
  Company Number: US-BAXTER-2008BH014282

PATIENT
  Age: 12 Year
  Sex: Female

DRUGS (13)
  1. CYCLOPHOSPHAMIDE [Suspect]
     Indication: EWING'S SARCOMA
     Route: 065
  2. IFOSFAMIDE [Suspect]
     Indication: EWING'S SARCOMA
     Route: 065
  3. ETOPOSIDE [Suspect]
     Indication: EWING'S SARCOMA
     Route: 065
  4. ETOPOSIDE [Suspect]
     Route: 048
  5. TOPOTECAN HYDROCHLORIDE [Suspect]
     Indication: EWING'S SARCOMA
     Route: 065
  6. VINCRISTINE SULFATE [Suspect]
     Indication: EWING'S SARCOMA
     Route: 065
  7. VINBLASTINE SULFATE [Suspect]
     Indication: EWING'S SARCOMA
     Route: 065
  8. MELPHALAN [Suspect]
     Indication: EWING'S SARCOMA
     Route: 065
  9. THIOTEPA [Suspect]
     Indication: EWING'S SARCOMA
     Route: 065
  10. FLUDARABINE PHOSPHATE [Suspect]
     Indication: EWING'S SARCOMA
     Route: 065
  11. DOXORUBICIN HCL [Suspect]
     Indication: EWING'S SARCOMA
     Route: 065
  12. IRINOTECAN HYDROCHLORIDE [Suspect]
     Indication: EWING'S SARCOMA
     Route: 065
  13. CARBOPLATIN [Suspect]
     Indication: EWING'S SARCOMA
     Route: 065

REACTIONS (7)
  - ANTI-GAD ANTIBODY [None]
  - ASTHENIA [None]
  - HYPOAESTHESIA [None]
  - PARAPLEGIA [None]
  - REFLEXES ABNORMAL [None]
  - SENSORY LOSS [None]
  - SPINAL DISORDER [None]
